FAERS Safety Report 9353540 (Version 1)
Quarter: 2013Q2

REPORT INFORMATION
  Report Type: Spontaneous
  Country: US (occurrence: None)
  Receive Date: 20130617
  Receipt Date: 20130617
  Transmission Date: 20140414
  Serious: No
  Sender: FDA-Public Use
  Company Number: None

PATIENT
  Sex: Female

DRUGS (1)
  1. ENBREL SURECLICK [Suspect]
     Route: 058
     Dates: start: 20121113, end: 20130607

REACTIONS (2)
  - Swelling [None]
  - Pain [None]
